FAERS Safety Report 7680660-2 (Version None)
Quarter: 2011Q3

REPORT INFORMATION
  Report Type: 
  Country: None (occurrence: None)
  Receive Date: 20110812
  Receipt Date: 20110810
  Transmission Date: 20111222
  Serious: Yes (Other)
  Sender: FDA-Public Use
  Company Number: JP-SANOFI-AVENTIS-2011SA050594

PATIENT
  Age: 75 Year
  Sex: Female

DRUGS (4)
  1. ALENDRONATE SODIUM [Concomitant]
     Dates: start: 20110601
  2. ALFACALCIDOL [Concomitant]
     Dates: start: 20110601
  3. OPALMON [Concomitant]
     Dates: start: 20110601
  4. ALLEGRA [Suspect]
     Route: 048
     Dates: start: 20110723, end: 20110801

REACTIONS (2)
  - NIGHTMARE [None]
  - HALLUCINATION [None]
